FAERS Safety Report 14136721 (Version 1)
Quarter: 2017Q4

REPORT INFORMATION
  Report Type: Spontaneous
  Country: US (occurrence: None)
  Receive Date: 20171027
  Receipt Date: 20171027
  Transmission Date: 20180321
  Serious: Yes (Other)
  Sender: FDA-Public Use
  Company Number: None

PATIENT
  Age: 65 Year
  Sex: Male
  Weight: 113.85 kg

DRUGS (7)
  1. FENOFIBRATE. [Suspect]
     Active Substance: FENOFIBRATE
  2. METFORMIN [Concomitant]
     Active Substance: METFORMIN HYDROCHLORIDE
  3. MULTI-VITAMIN [Concomitant]
     Active Substance: .ALPHA.-TOCOPHEROL ACETATE, DL-\ASCORBIC ACID\CYANOCOBALAMIN\FLUORIDE ION\FOLIC ACID\NIACIN\PYRIDOXINE\RIBOFLAVIN\THIAMINE\VITAMIN A\VITAMIN D
  4. TRADJENTA [Suspect]
     Active Substance: LINAGLIPTIN
  5. ASPIRIN. [Concomitant]
     Active Substance: ASPIRIN
  6. JARDIANCE [Suspect]
     Active Substance: EMPAGLIFLOZIN
     Indication: DIABETES MELLITUS
     Route: 048
     Dates: start: 20171007, end: 20171012
  7. LISINOPRIL. [Suspect]
     Active Substance: LISINOPRIL

REACTIONS (2)
  - Heart rate increased [None]
  - Palpitations [None]

NARRATIVE: CASE EVENT DATE: 20171008
